FAERS Safety Report 22229447 (Version 1)
Quarter: 2023Q2

REPORT INFORMATION
  Report Type: Report from Study
  Country: US (occurrence: US)
  Receive Date: 20230419
  Receipt Date: 20230419
  Transmission Date: 20230722
  Serious: Yes (Hospitalization, Other)
  Sender: FDA-Public Use
  Company Number: US-ABBVIE-4732687

PATIENT
  Age: 81 Year
  Sex: Female

DRUGS (1)
  1. IMBRUVICA [Suspect]
     Active Substance: IBRUTINIB
     Indication: Chronic lymphocytic leukaemia
     Dosage: DRUG START DATE:16 MAR 2023
     Route: 048
     Dates: end: 20230321

REACTIONS (2)
  - Volvulus of small bowel [Unknown]
  - Wound infection [Recovering/Resolving]

NARRATIVE: CASE EVENT DATE: 20230301
